FAERS Safety Report 9373065 (Version 2)
Quarter: 2013Q3

REPORT INFORMATION
  Report Type: Spontaneous
  Country: IE (occurrence: IE)
  Receive Date: 20130627
  Receipt Date: 20130912
  Transmission Date: 20140515
  Serious: Yes (Other)
  Sender: FDA-Public Use
  Company Number: IE-PFIZER INC-2013188592

PATIENT
  Age: 32 Year
  Sex: Female

DRUGS (5)
  1. LYRICA [Suspect]
     Dosage: 900 MG, UNK
     Route: 048
  2. METHADONE HYDROCHLORIDE [Concomitant]
     Dosage: 1 MG/ML, 120MLS DAILY
     Route: 048
  3. ZYPREXA [Concomitant]
     Dosage: 10 MG, 1X/DAY AT NIGHT
  4. DALMANE [Concomitant]
     Dosage: 30 MG, 1X/DAY AT NIGHT
     Route: 048
  5. DIAZEPAM [Concomitant]
     Dosage: 10 MG, 3X/DAY
     Route: 048

REACTIONS (5)
  - Drug dependence [Recovered/Resolved]
  - Drug withdrawal syndrome [Recovered/Resolved]
  - Hyperhidrosis [Recovered/Resolved]
  - Diarrhoea [Recovered/Resolved]
  - Agitation [Recovered/Resolved]
